FAERS Safety Report 21580155 (Version 2)
Quarter: 2022Q4

REPORT INFORMATION
  Report Type: Spontaneous
  Country: DE (occurrence: DE)
  Receive Date: 20221110
  Receipt Date: 20221116
  Transmission Date: 20230113
  Serious: No
  Sender: FDA-Public Use
  Company Number: DE-009507513-2210DEU007647

PATIENT
  Age: 80 Year
  Sex: Male
  Weight: 68.4 kg

DRUGS (14)
  1. PEMBROLIZUMAB [Suspect]
     Active Substance: PEMBROLIZUMAB
     Indication: Alveolar soft part sarcoma
     Dosage: 200 MILLIGRAM, Q3W
     Route: 042
     Dates: start: 20210311
  2. AXITINIB [Suspect]
     Active Substance: AXITINIB
     Indication: Alveolar soft part sarcoma
     Dosage: 5 MILLIGRAM, BID
     Route: 048
     Dates: start: 202103, end: 202109
  3. XIPAMIDE [Concomitant]
     Active Substance: XIPAMIDE
     Indication: Hypertension
     Route: 048
  4. AMLODIPINE [Concomitant]
     Active Substance: AMLODIPINE BESYLATE
     Indication: Hypertension
     Route: 048
  5. BISOPROLOL [Concomitant]
     Active Substance: BISOPROLOL
     Indication: Hypertension
     Route: 048
  6. RAMIPRIL [Concomitant]
     Active Substance: RAMIPRIL
     Indication: Hypertension
     Route: 048
  7. ASPIRIN [Concomitant]
     Active Substance: ASPIRIN
     Route: 048
  8. PANTOPRAZOLE [Concomitant]
     Active Substance: PANTOPRAZOLE
     Route: 048
  9. CALCIUM CARBONATE\CHOLECALCIFEROL [Concomitant]
     Active Substance: CALCIUM CARBONATE\CHOLECALCIFEROL
     Route: 048
  10. BIONORM [REPAGLINIDE] [Concomitant]
     Route: 048
  11. NALOXONE HYDROCHLORIDE\TILIDINE HYDROCHLORIDE [Concomitant]
     Active Substance: NALOXONE HYDROCHLORIDE\TILIDINE HYDROCHLORIDE
  12. METAMIZOLE [Concomitant]
     Active Substance: METAMIZOLE
     Indication: Pain
     Route: 048
  13. MAGNESIUM VERLA [MAGNESIUM] [Concomitant]
     Route: 048
  14. MIRTAZAPINE [Concomitant]
     Active Substance: MIRTAZAPINE
     Indication: Sleep disorder
     Route: 048

REACTIONS (4)
  - Alanine aminotransferase increased [Unknown]
  - Aspartate aminotransferase increased [Unknown]
  - Gamma-glutamyltransferase increased [Unknown]
  - Off label use [Unknown]
